FAERS Safety Report 14890025 (Version 1)
Quarter: 2018Q2

REPORT INFORMATION
  Report Type: Spontaneous
  Country: US (occurrence: US)
  Receive Date: 20180514
  Receipt Date: 20180514
  Transmission Date: 20180711
  Serious: No
  Sender: FDA-Public Use
  Company Number: US-SHIRE-US201817748

PATIENT
  Sex: Male
  Weight: 72.11 kg

DRUGS (6)
  1. LIALDA [Suspect]
     Active Substance: MESALAMINE
     Indication: COLITIS ULCERATIVE
     Dosage: 1.2 G, 4X/DAY:QID
     Route: 065
     Dates: start: 20180503
  2. THEOPHYLLINE [Concomitant]
     Active Substance: THEOPHYLLINE ANHYDROUS
     Indication: CHRONIC OBSTRUCTIVE PULMONARY DISEASE
  3. AZATHIOPRINE. [Concomitant]
     Active Substance: AZATHIOPRINE
     Indication: PRODUCT USED FOR UNKNOWN INDICATION
  4. BABY ASPIRIN [Concomitant]
     Active Substance: ASPIRIN
     Indication: PRODUCT USED FOR UNKNOWN INDICATION
  5. CARDURA [Concomitant]
     Active Substance: DOXAZOSIN MESYLATE
     Indication: PROSTATIC DISORDER
  6. PRAVASTATIN. [Concomitant]
     Active Substance: PRAVASTATIN
     Indication: STENT PLACEMENT

REACTIONS (5)
  - Medication residue present [Unknown]
  - Condition aggravated [Unknown]
  - Weight decreased [Unknown]
  - Abdominal pain [Unknown]
  - Diarrhoea [Unknown]
